FAERS Safety Report 8387600-1 (Version None)
Quarter: 2012Q2

REPORT INFORMATION
  Report Type: 
  Country: None (occurrence: None)
  Receive Date: 20120525
  Receipt Date: 20120430
  Transmission Date: 20120825
  Serious: No
  Sender: FDA-Public Use
  Company Number: US-ASTRAZENECA-2012SE28013

PATIENT
  Age: 57 Year
  Sex: Female

DRUGS (4)
  1. NEXIUM [Suspect]
     Indication: GASTROOESOPHAGEAL REFLUX DISEASE
     Route: 048
     Dates: start: 20120301
  2. NEXIUM [Suspect]
     Dosage: TAKING AS NEEDED
     Route: 048
     Dates: start: 20120301
  3. NEXIUM [Suspect]
     Dosage: TAKING AS NEEDED
     Route: 048
     Dates: start: 20120301
  4. NEXIUM [Suspect]
     Indication: HELICOBACTER GASTRITIS
     Route: 048
     Dates: start: 20120301

REACTIONS (3)
  - HYPERTENSION [None]
  - OVERWEIGHT [None]
  - HEADACHE [None]
